FAERS Safety Report 13947484 (Version 1)
Quarter: 2017Q3

REPORT INFORMATION
  Report Type: Report from Study
  Country: None (occurrence: BR)
  Receive Date: 20170908
  Receipt Date: 20170908
  Transmission Date: 20171128
  Serious: Yes (Other)
  Sender: FDA-Public Use
  Company Number: BR-ABBVIE-17K-020-2091899-00

PATIENT
  Age: 57 Year
  Sex: Female
  Weight: 75 kg

DRUGS (1)
  1. HUMIRA [Suspect]
     Active Substance: ADALIMUMAB
     Indication: ANKYLOSING SPONDYLITIS
     Route: 058
     Dates: start: 20150130

REACTIONS (8)
  - Gait disturbance [Unknown]
  - Spinal flattening [Unknown]
  - Spinal cord injury [Unknown]
  - Intervertebral disc disorder [Unknown]
  - Fatigue [Recovered/Resolved]
  - Spinal column injury [Not Recovered/Not Resolved]
  - Spinal pain [Recovering/Resolving]
  - Otitis externa [Unknown]

NARRATIVE: CASE EVENT DATE: 201705
